FAERS Safety Report 5041809-3 (Version None)
Quarter: 2006Q2

REPORT INFORMATION
  Report Type: 
  Country: None (occurrence: None)
  Receive Date: 20060630
  Receipt Date: 20060619
  Transmission Date: 20061013
  Serious: Yes (Other)
  Sender: FDA-Public Use
  Company Number: 200612373BCC

PATIENT
  Age: 69 Year
  Sex: Female
  Weight: 72.5755 kg

DRUGS (6)
  1. ASPIRIN [Suspect]
     Indication: CEREBROVASCULAR ACCIDENT
     Dosage: 81 MG, TOTAL DAILY, ORAL
     Route: 048
     Dates: start: 20050601
  2. FLINTSTONE COMPLETE [Suspect]
     Indication: CEREBROVASCULAR ACCIDENT
     Dosage: ORAL
     Route: 048
  3. MAGNESIUM SUPPLEMENT [Concomitant]
  4. NORVASC [Concomitant]
  5. PREMARIN [ESTROGENS CONJUGATED, MEDEROGESTONE] [Concomitant]
  6. CLARINEX [Concomitant]

REACTIONS (5)
  - ASTHENIA [None]
  - BENIGN NEOPLASM OF PINEAL GLAND [None]
  - FLUSHING [None]
  - HEART RATE INCREASED [None]
  - VERTIGO POSITIONAL [None]
